FAERS Safety Report 9895677 (Version 2)
Quarter: 2014Q1

REPORT INFORMATION
  Report Type: Spontaneous
  Country: US (occurrence: US)
  Receive Date: 20140213
  Receipt Date: 20140213
  Transmission Date: 20141002
  Serious: No
  Sender: FDA-Public Use
  Company Number: US-BRISTOL-MYERS SQUIBB COMPANY-18748996

PATIENT
  Age: 60 Year
  Sex: Male
  Weight: 68.03 kg

DRUGS (9)
  1. ABATACEPT SUBQ INJECTION 125MG/ML [Suspect]
     Indication: RHEUMATOID ARTHRITIS
     Dosage: 1 DF = 125MG/ML
     Route: 058
  2. ASPIRIN [Concomitant]
  3. BENAZEPRIL HCL [Concomitant]
  4. COREG [Concomitant]
  5. COZAAR [Concomitant]
  6. LASIX [Concomitant]
  7. HUMALOG [Concomitant]
  8. METHOTREXATE [Concomitant]
  9. MINOXIDIL [Concomitant]

REACTIONS (2)
  - Nasopharyngitis [Unknown]
  - Joint swelling [Unknown]
